FAERS Safety Report 14332839 (Version 2)
Quarter: 2018Q1

REPORT INFORMATION
  Report Type: Spontaneous
  Country: ES (occurrence: ES)
  Receive Date: 20171228
  Receipt Date: 20180221
  Transmission Date: 20180509
  Serious: Yes (Other)
  Sender: FDA-Public Use
  Company Number: ES-AUROBINDO-AUR-APL-2017-47540

PATIENT
  Sex: Male

DRUGS (5)
  1. RISPERIDONE. [Suspect]
     Active Substance: RISPERIDONE
     Dosage: 3 MG, ONCE A DAY
     Route: 065
     Dates: start: 2015
  2. CLONAZEPAM. [Suspect]
     Active Substance: CLONAZEPAM
     Indication: SCHIZOPHRENIA
     Dosage: 2 MG, ONCE A DAY
     Route: 065
  3. ARIPIPRAZOL AUROVITAS TABLETS EFG 5MG [Suspect]
     Active Substance: ARIPIPRAZOLE
     Dosage: 5 MG, ONCE A DAY
     Route: 048
     Dates: start: 2015
  4. RISPERIDONE. [Suspect]
     Active Substance: RISPERIDONE
     Indication: SCHIZOPHRENIA
     Dosage: 3 MG, ONCE A DAY
     Route: 065
  5. ARIPIPRAZOL AUROVITAS TABLETS EFG 5MG [Suspect]
     Active Substance: ARIPIPRAZOLE
     Indication: SCHIZOPHRENIA
     Dosage: 5 MG, ONCE A DAY
     Route: 048

REACTIONS (4)
  - Sedation [Unknown]
  - Ataxia [Unknown]
  - Disturbance in attention [Unknown]
  - Dysarthria [Unknown]

NARRATIVE: CASE EVENT DATE: 20150101
